FAERS Safety Report 7772719-6 (Version None)
Quarter: 2011Q3

REPORT INFORMATION
  Report Type: 
  Country: None (occurrence: None)
  Receive Date: 20110922
  Receipt Date: 20101108
  Transmission Date: 20111222
  Serious: Yes (Other)
  Sender: FDA-Public Use
  Company Number: US-ASTRAZENECA-2010SE52827

PATIENT
  Age: 40 Year
  Sex: Male
  Weight: 71.7 kg

DRUGS (1)
  1. SEROQUEL XR [Suspect]
     Indication: MAJOR DEPRESSION
     Route: 048
     Dates: start: 20100801, end: 20101101

REACTIONS (9)
  - PARANOIA [None]
  - DIZZINESS [None]
  - SUICIDAL IDEATION [None]
  - PANIC ATTACK [None]
  - ANGER [None]
  - VOMITING [None]
  - DRUG DOSE OMISSION [None]
  - IRRITABILITY [None]
  - MIGRAINE [None]
